FAERS Safety Report 11190321 (Version 1)
Quarter: 2015Q2

REPORT INFORMATION
  Report Type: Spontaneous
  Country: US (occurrence: None)
  Receive Date: 20150603
  Receipt Date: 20150603
  Transmission Date: 20150821
  Serious: No
  Sender: FDA-Public Use
  Company Number: 2015TASUS000733

PATIENT
  Age: 61 Year
  Sex: Female
  Weight: 49 kg

DRUGS (7)
  1. FORTEO [Concomitant]
     Active Substance: TERIPARATIDE
  2. CALCIUM (CALCIUM CARBONATE) [Concomitant]
  3. LYRICA [Concomitant]
     Active Substance: PREGABALIN
  4. CYMBALTA [Concomitant]
     Active Substance: DULOXETINE HYDROCHLORIDE
  5. MIRALAX (MACROGOL) [Concomitant]
  6. LEVOTHYROXINE (LEVOTHYROXINE SODIUM) [Concomitant]
  7. HETLIOZ [Suspect]
     Active Substance: TASIMELTEON
     Indication: CIRCADIAN RHYTHM SLEEP DISORDER
     Route: 048
     Dates: start: 201502, end: 201502

REACTIONS (1)
  - Viral upper respiratory tract infection [None]

NARRATIVE: CASE EVENT DATE: 20150228
